FAERS Safety Report 18348154 (Version 1)
Quarter: 2020Q4

REPORT INFORMATION
  Report Type: Spontaneous
  Country: AU (occurrence: AU)
  Receive Date: 20201006
  Receipt Date: 20201006
  Transmission Date: 20210114
  Serious: Yes (Other)
  Sender: FDA-Public Use
  Company Number: NVSC2020AU262447

PATIENT
  Age: 46 Year

DRUGS (6)
  1. CYCLOPHOSPHAMIDE. [Suspect]
     Active Substance: CYCLOPHOSPHAMIDE
     Indication: ACUTE LYMPHOCYTIC LEUKAEMIA
     Dosage: UNK
     Route: 065
  2. DEXAMETHASONE. [Suspect]
     Active Substance: DEXAMETHASONE
     Indication: ACUTE LYMPHOCYTIC LEUKAEMIA
     Dosage: UNK
     Route: 065
  3. ADRIAMYCIN [Suspect]
     Active Substance: DOXORUBICIN HYDROCHLORIDE
     Indication: ACUTE LYMPHOCYTIC LEUKAEMIA
     Dosage: UNK
     Route: 065
  4. RITUXIMAB. [Suspect]
     Active Substance: RITUXIMAB
     Indication: ACUTE LYMPHOCYTIC LEUKAEMIA
     Dosage: UNK
     Route: 065
  5. IMATINIB. [Suspect]
     Active Substance: IMATINIB MESYLATE
     Indication: ACUTE LYMPHOCYTIC LEUKAEMIA
     Route: 065
  6. VINCRISTINE [Suspect]
     Active Substance: VINCRISTINE
     Indication: ACUTE LYMPHOCYTIC LEUKAEMIA
     Dosage: UNK
     Route: 065

REACTIONS (17)
  - Hypokinesia [Unknown]
  - Neutropenic sepsis [Unknown]
  - Mitral valve incompetence [Unknown]
  - Malignant neoplasm progression [Unknown]
  - Thrombocytosis [Unknown]
  - Acute myocardial infarction [Unknown]
  - Pulmonary hypertension [Unknown]
  - Acute lymphocytic leukaemia (in remission) [Unknown]
  - Drug resistance [Unknown]
  - Tricuspid valve incompetence [Unknown]
  - Coronary artery stenosis [Unknown]
  - Left ventricular hypertrophy [Unknown]
  - Acute lymphocytic leukaemia recurrent [Unknown]
  - Myelofibrosis [Unknown]
  - Vascular stent stenosis [Unknown]
  - Coronary artery disease [Unknown]
  - Diastolic dysfunction [Unknown]

NARRATIVE: CASE EVENT DATE: 201906
